FAERS Safety Report 4859658-5 (Version None)
Quarter: 2005Q4

REPORT INFORMATION
  Report Type: 
  Country: None (occurrence: None)
  Receive Date: 20051219
  Receipt Date: 20051208
  Transmission Date: 20060501
  Serious: Yes (Hospitalization)
  Sender: FDA-Public Use
  Company Number: PHHO2005GB19288

PATIENT
  Sex: Male

DRUGS (4)
  1. SYNTOCINON [Suspect]
     Dosage: UNK, UNK
     Route: 064
  2. MISOPROSTOL [Concomitant]
     Dosage: UNK, UNK
     Route: 064
  3. MISOPROSTOL [Concomitant]
     Dosage: UNK, UNK
     Route: 064
  4. RANITIDINE [Concomitant]
     Route: 064

REACTIONS (7)
  - ARTIFICIAL RUPTURE OF MEMBRANES [None]
  - CAESAREAN SECTION [None]
  - DRUG EXPOSURE DURING PREGNANCY [None]
  - FOETAL HEART RATE ABNORMAL [None]
  - FOETAL HEART RATE DECELERATION [None]
  - FOETAL MOVEMENTS DECREASED [None]
  - MECONIUM STAIN [None]
